FAERS Safety Report 9294855 (Version 1)
Quarter: 2013Q2

REPORT INFORMATION
  Report Type: Spontaneous
  Country: US (occurrence: US)
  Receive Date: 20130517
  Receipt Date: 20130517
  Transmission Date: 20140414
  Serious: No
  Sender: FDA-Public Use
  Company Number: US-PFIZER INC-2013149398

PATIENT
  Sex: 0

DRUGS (1)
  1. NEOSPORIN [Suspect]
     Dosage: UNK
     Route: 047

REACTIONS (2)
  - Swelling [Unknown]
  - Eye irritation [Unknown]
